FAERS Safety Report 5884715-4 (Version None)
Quarter: 2008Q3

REPORT INFORMATION
  Report Type: 
  Country: None (occurrence: None)
  Receive Date: 20080916
  Receipt Date: 20071121
  Transmission Date: 20090109
  Serious: Yes (Death, Other)
  Sender: FDA-Public Use
  Company Number: US-ASTRAZENECA-2006UW21548

PATIENT
  Age: 28 Year
  Sex: Male
  Weight: 81.6 kg

DRUGS (13)
  1. SEROQUEL [Suspect]
     Indication: BIPOLAR DISORDER
     Route: 048
     Dates: start: 20030301, end: 20050101
  2. SEROQUEL [Suspect]
     Indication: DEPRESSION
     Route: 048
     Dates: start: 20030301, end: 20050101
  3. CLOZARIL [Concomitant]
  4. GEODON [Concomitant]
  5. HALDOL [Concomitant]
  6. ZYPREXA [Concomitant]
  7. VALPROATE SODIUM [Concomitant]
  8. PENICILLIN [Concomitant]
  9. PERCOCET [Concomitant]
  10. HYDROCODONE BITARTRATE + ACETAMINOPHEN [Concomitant]
     Dosage: 5/500 UD
  11. PROMETHAZINE [Concomitant]
     Dosage: 25 MG/ML
  12. AZITHROMYCIN [Concomitant]
  13. DOXYCYCLINE [Concomitant]

REACTIONS (2)
  - DEATH [None]
  - DIABETIC COMA [None]
